FAERS Safety Report 5373079-0 (Version None)
Quarter: 2007Q2

REPORT INFORMATION
  Report Type: 
  Country: None (occurrence: None)
  Receive Date: 20070626
  Receipt Date: 20070613
  Transmission Date: 20071010
  Serious: Yes (Hospitalization, Other)
  Sender: FDA-Public Use
  Company Number: 234860K07USA

PATIENT
  Age: 36 Year
  Sex: Female
  Weight: 61.2356 kg

DRUGS (2)
  1. REBIF [Suspect]
     Indication: MULTIPLE SCLEROSIS
     Dosage: 44 MCG, 3 IN 1 WEEKS, SUBCUTANEOUS
     Route: 058
     Dates: start: 20040101
  2. ZANTAC [Concomitant]

REACTIONS (5)
  - FOOD ALLERGY [None]
  - ILEUS PARALYTIC [None]
  - OVARIAN CYST RUPTURED [None]
  - PULMONARY EMBOLISM [None]
  - WEIGHT DECREASED [None]
